FAERS Safety Report 23123765 (Version 1)
Quarter: 2023Q4

REPORT INFORMATION
  Report Type: Spontaneous
  Country: SE (occurrence: SE)
  Receive Date: 20231030
  Receipt Date: 20231030
  Transmission Date: 20240110
  Serious: Yes (Life-Threatening, Hospitalization)
  Sender: FDA-Public Use
  Company Number: None

PATIENT
  Age: 78 Year
  Sex: Male
  Weight: 87 kg

DRUGS (13)
  1. JARDIANCE [Suspect]
     Active Substance: EMPAGLIFLOZIN
     Indication: Type 2 diabetes mellitus
     Route: 048
     Dates: start: 20201106, end: 20231023
  2. ABASAGLAR KwikPen (previous name ABASAGLAR) [Concomitant]
     Indication: Product used for unknown indication
  3. ASPIRIN [Concomitant]
     Active Substance: ASPIRIN
     Indication: Product used for unknown indication
  4. ISOMEX [Concomitant]
     Indication: Product used for unknown indication
  5. Atorvastatin 1A Farma (previous namen Atorvastatin Medical Valle) [Concomitant]
     Indication: Product used for unknown indication
  6. Alfuzosin Ebb [Concomitant]
     Indication: Product used for unknown indication
  7. INSULIN LISPRO [Concomitant]
     Active Substance: INSULIN LISPRO
     Indication: Product used for unknown indication
  8. PARAFLEX [Concomitant]
     Active Substance: CHLORZOXAZONE
     Indication: Product used for unknown indication
  9. METFORMIN ACCORD [Concomitant]
     Indication: Product used for unknown indication
  10. Pevison (previous name Pevisone) [Concomitant]
     Indication: Product used for unknown indication
  11. JANUVIA [Concomitant]
     Active Substance: SITAGLIPTIN PHOSPHATE
     Indication: Product used for unknown indication
     Dosage: 1X1
     Route: 048
     Dates: start: 20160101, end: 20231023
  12. Enalapril Accord [Concomitant]
     Indication: Product used for unknown indication
  13. Bisoprolol 2care4 [Concomitant]
     Indication: Product used for unknown indication

REACTIONS (3)
  - Balanoposthitis [Recovered/Resolved]
  - Fungal infection [Recovered/Resolved]
  - Urinary tract infection [Recovered/Resolved]

NARRATIVE: CASE EVENT DATE: 20210101
